FAERS Safety Report 7338214-3 (Version None)
Quarter: 2011Q1

REPORT INFORMATION
  Report Type: 
  Country: None (occurrence: None)
  Receive Date: 20110308
  Receipt Date: 20110302
  Transmission Date: 20110831
  Serious: No
  Sender: FDA-Public Use
  Company Number: US-PFIZER INC-2011046445

PATIENT
  Sex: Female
  Weight: 91 kg

DRUGS (6)
  1. TIZANIDINE [Concomitant]
     Dosage: UNK
  2. LOVASTATIN [Concomitant]
     Dosage: UNK
  3. GABAPENTIN [Concomitant]
     Dosage: UNK
  4. LYRICA [Suspect]
     Dosage: 75 MG, UNK
     Route: 048
     Dates: end: 20110302
  5. LYRICA [Suspect]
     Indication: PERONEAL MUSCULAR ATROPHY
     Dosage: 75 MG, 3X/DAY
     Route: 048
     Dates: start: 20101101
  6. KETOPROFEN [Concomitant]
     Dosage: UNK

REACTIONS (7)
  - NAUSEA [None]
  - FEELING ABNORMAL [None]
  - INSOMNIA [None]
  - WEIGHT INCREASED [None]
  - OEDEMA PERIPHERAL [None]
  - DRUG INTOLERANCE [None]
  - MALAISE [None]
